FAERS Safety Report 15077223 (Version 9)
Quarter: 2025Q1

REPORT INFORMATION
  Report Type: Spontaneous
  Country: BE (occurrence: BE)
  Receive Date: 20180627
  Receipt Date: 20250328
  Transmission Date: 20250408
  Serious: Yes (Death, Life-Threatening, Disabling, Congenital Anomaly, Other)
  Sender: MYLAN
  Company Number: BE-GLAXOSMITHKLINE-BE2017GSK177076

PATIENT
  Age: 1 Week
  Sex: Male
  Weight: 0.3 kg

DRUGS (136)
  1. PANTOPRAZOLE [Suspect]
     Active Substance: PANTOPRAZOLE
     Indication: Product used for unknown indication
  2. PANTOPRAZOLE [Suspect]
     Active Substance: PANTOPRAZOLE
  3. PANTOPRAZOLE [Suspect]
     Active Substance: PANTOPRAZOLE
     Route: 064
  4. PANTOPRAZOLE [Suspect]
     Active Substance: PANTOPRAZOLE
     Route: 064
  5. PANTOPRAZOLE [Suspect]
     Active Substance: PANTOPRAZOLE
  6. PANTOPRAZOLE [Suspect]
     Active Substance: PANTOPRAZOLE
  7. PANTOPRAZOLE [Suspect]
     Active Substance: PANTOPRAZOLE
     Route: 064
  8. PANTOPRAZOLE [Suspect]
     Active Substance: PANTOPRAZOLE
     Route: 064
  9. LEVOCETIRIZINE [Suspect]
     Active Substance: LEVOCETIRIZINE
     Indication: Product used for unknown indication
     Dosage: 5 MILLIGRAM, QD
  10. LEVOCETIRIZINE [Suspect]
     Active Substance: LEVOCETIRIZINE
     Dosage: 5 MILLIGRAM, QD
  11. LEVOCETIRIZINE [Suspect]
     Active Substance: LEVOCETIRIZINE
     Dosage: 5 MILLIGRAM, QD
     Route: 064
  12. LEVOCETIRIZINE [Suspect]
     Active Substance: LEVOCETIRIZINE
     Dosage: 5 MILLIGRAM, QD
     Route: 064
  13. LEVOCETIRIZINE [Suspect]
     Active Substance: LEVOCETIRIZINE
     Dosage: 5 MILLIGRAM, QD
  14. LEVOCETIRIZINE [Suspect]
     Active Substance: LEVOCETIRIZINE
     Dosage: 5 MILLIGRAM, QD
  15. LEVOCETIRIZINE [Suspect]
     Active Substance: LEVOCETIRIZINE
     Dosage: 5 MILLIGRAM, QD
     Route: 064
  16. LEVOCETIRIZINE [Suspect]
     Active Substance: LEVOCETIRIZINE
     Dosage: 5 MILLIGRAM, QD
     Route: 064
  17. DEXPANTHENOL [Suspect]
     Active Substance: DEXPANTHENOL
     Indication: Product used for unknown indication
  18. DEXPANTHENOL [Suspect]
     Active Substance: DEXPANTHENOL
  19. DEXPANTHENOL [Suspect]
     Active Substance: DEXPANTHENOL
     Route: 064
  20. DEXPANTHENOL [Suspect]
     Active Substance: DEXPANTHENOL
     Route: 064
  21. DEXPANTHENOL [Suspect]
     Active Substance: DEXPANTHENOL
  22. DEXPANTHENOL [Suspect]
     Active Substance: DEXPANTHENOL
  23. DEXPANTHENOL [Suspect]
     Active Substance: DEXPANTHENOL
     Route: 064
  24. DEXPANTHENOL [Suspect]
     Active Substance: DEXPANTHENOL
     Route: 064
  25. NUCALA [Suspect]
     Active Substance: MEPOLIZUMAB
     Indication: Product used for unknown indication
     Dosage: 100 MG, QW
     Dates: start: 20170112
  26. NUCALA [Suspect]
     Active Substance: MEPOLIZUMAB
     Dosage: 100 MG, QW
     Dates: start: 20170112
  27. NUCALA [Suspect]
     Active Substance: MEPOLIZUMAB
     Dosage: 100 MG, QW
     Route: 064
     Dates: start: 20170112
  28. NUCALA [Suspect]
     Active Substance: MEPOLIZUMAB
     Dosage: 100 MG, QW
     Route: 064
     Dates: start: 20170112
  29. NUCALA [Suspect]
     Active Substance: MEPOLIZUMAB
     Dosage: 100 MG, QW
     Dates: start: 20170112
  30. NUCALA [Suspect]
     Active Substance: MEPOLIZUMAB
     Dosage: 100 MG, QW
     Dates: start: 20170112
  31. NUCALA [Suspect]
     Active Substance: MEPOLIZUMAB
     Dosage: 100 MG, QW
     Route: 064
     Dates: start: 20170112
  32. NUCALA [Suspect]
     Active Substance: MEPOLIZUMAB
     Dosage: 100 MG, QW
     Route: 064
     Dates: start: 20170112
  33. FLUTICASONE PROPIONATE [Suspect]
     Active Substance: FLUTICASONE PROPIONATE
     Indication: Product used for unknown indication
     Dosage: 250 MICROGRAM, BID, (250 ?G, BID)
  34. FLUTICASONE PROPIONATE [Suspect]
     Active Substance: FLUTICASONE PROPIONATE
     Dosage: 250 MICROGRAM, BID, (250 ?G, BID)
  35. FLUTICASONE PROPIONATE [Suspect]
     Active Substance: FLUTICASONE PROPIONATE
     Dosage: 250 MICROGRAM, BID, (250 ?G, BID)
     Route: 064
  36. FLUTICASONE PROPIONATE [Suspect]
     Active Substance: FLUTICASONE PROPIONATE
     Dosage: 250 MICROGRAM, BID, (250 ?G, BID)
     Route: 064
  37. FLUTICASONE PROPIONATE [Suspect]
     Active Substance: FLUTICASONE PROPIONATE
     Dosage: 250 MICROGRAM, BID, (250 ?G, BID)
  38. FLUTICASONE PROPIONATE [Suspect]
     Active Substance: FLUTICASONE PROPIONATE
     Dosage: 250 MICROGRAM, BID, (250 ?G, BID)
  39. FLUTICASONE PROPIONATE [Suspect]
     Active Substance: FLUTICASONE PROPIONATE
     Dosage: 250 MICROGRAM, BID, (250 ?G, BID)
     Route: 064
  40. FLUTICASONE PROPIONATE [Suspect]
     Active Substance: FLUTICASONE PROPIONATE
     Dosage: 250 MICROGRAM, BID, (250 ?G, BID)
     Route: 064
  41. THEOPHYLLINE [Suspect]
     Active Substance: THEOPHYLLINE
     Indication: Product used for unknown indication
     Dosage: 200 MG, QD
  42. THEOPHYLLINE [Suspect]
     Active Substance: THEOPHYLLINE
     Dosage: 200 MG, QD
  43. THEOPHYLLINE [Suspect]
     Active Substance: THEOPHYLLINE
     Dosage: 200 MG, QD
     Route: 064
  44. THEOPHYLLINE [Suspect]
     Active Substance: THEOPHYLLINE
     Dosage: 200 MG, QD
     Route: 064
  45. THEOPHYLLINE [Suspect]
     Active Substance: THEOPHYLLINE
     Dosage: 200 MG, QD
  46. THEOPHYLLINE [Suspect]
     Active Substance: THEOPHYLLINE
     Dosage: 200 MG, QD
  47. THEOPHYLLINE [Suspect]
     Active Substance: THEOPHYLLINE
     Dosage: 200 MG, QD
     Route: 064
  48. THEOPHYLLINE [Suspect]
     Active Substance: THEOPHYLLINE
     Dosage: 200 MG, QD
     Route: 064
  49. VENTOLIN [Suspect]
     Active Substance: ALBUTEROL SULFATE
     Indication: Product used for unknown indication
  50. VENTOLIN [Suspect]
     Active Substance: ALBUTEROL SULFATE
  51. VENTOLIN [Suspect]
     Active Substance: ALBUTEROL SULFATE
     Route: 064
  52. VENTOLIN [Suspect]
     Active Substance: ALBUTEROL SULFATE
     Route: 064
  53. VENTOLIN [Suspect]
     Active Substance: ALBUTEROL SULFATE
  54. VENTOLIN [Suspect]
     Active Substance: ALBUTEROL SULFATE
  55. VENTOLIN [Suspect]
     Active Substance: ALBUTEROL SULFATE
     Route: 064
  56. VENTOLIN [Suspect]
     Active Substance: ALBUTEROL SULFATE
     Route: 064
  57. FLUTICASONE FUROATE\VILANTEROL TRIFENATATE [Suspect]
     Active Substance: FLUTICASONE FUROATE\VILANTEROL TRIFENATATE
     Indication: Product used for unknown indication
     Dosage: 1 DF, QD
  58. FLUTICASONE FUROATE\VILANTEROL TRIFENATATE [Suspect]
     Active Substance: FLUTICASONE FUROATE\VILANTEROL TRIFENATATE
     Dosage: 1 DF, QD
  59. FLUTICASONE FUROATE\VILANTEROL TRIFENATATE [Suspect]
     Active Substance: FLUTICASONE FUROATE\VILANTEROL TRIFENATATE
     Dosage: 1 DF, QD
     Route: 064
  60. FLUTICASONE FUROATE\VILANTEROL TRIFENATATE [Suspect]
     Active Substance: FLUTICASONE FUROATE\VILANTEROL TRIFENATATE
     Dosage: 1 DF, QD
     Route: 064
  61. FLUTICASONE FUROATE\VILANTEROL TRIFENATATE [Suspect]
     Active Substance: FLUTICASONE FUROATE\VILANTEROL TRIFENATATE
     Dosage: 1 DF, QD
  62. FLUTICASONE FUROATE\VILANTEROL TRIFENATATE [Suspect]
     Active Substance: FLUTICASONE FUROATE\VILANTEROL TRIFENATATE
     Dosage: 1 DF, QD
  63. FLUTICASONE FUROATE\VILANTEROL TRIFENATATE [Suspect]
     Active Substance: FLUTICASONE FUROATE\VILANTEROL TRIFENATATE
     Dosage: 1 DF, QD
     Route: 064
  64. FLUTICASONE FUROATE\VILANTEROL TRIFENATATE [Suspect]
     Active Substance: FLUTICASONE FUROATE\VILANTEROL TRIFENATATE
     Dosage: 1 DF, QD
     Route: 064
  65. ESCITALOPRAM OXALATE [Suspect]
     Active Substance: ESCITALOPRAM OXALATE
     Indication: Product used for unknown indication
  66. ESCITALOPRAM OXALATE [Suspect]
     Active Substance: ESCITALOPRAM OXALATE
  67. ESCITALOPRAM OXALATE [Suspect]
     Active Substance: ESCITALOPRAM OXALATE
     Route: 064
  68. ESCITALOPRAM OXALATE [Suspect]
     Active Substance: ESCITALOPRAM OXALATE
     Route: 064
  69. ESCITALOPRAM OXALATE [Suspect]
     Active Substance: ESCITALOPRAM OXALATE
  70. ESCITALOPRAM OXALATE [Suspect]
     Active Substance: ESCITALOPRAM OXALATE
  71. ESCITALOPRAM OXALATE [Suspect]
     Active Substance: ESCITALOPRAM OXALATE
     Route: 064
  72. ESCITALOPRAM OXALATE [Suspect]
     Active Substance: ESCITALOPRAM OXALATE
     Route: 064
  73. FLUTICASONE FUROATE [Suspect]
     Active Substance: FLUTICASONE FUROATE
     Indication: Product used for unknown indication
     Dosage: 2 DOSAGE FORM, QD
     Route: 064
  74. FLUTICASONE FUROATE [Suspect]
     Active Substance: FLUTICASONE FUROATE
     Dosage: 2 DOSAGE FORM, QD
  75. FLUTICASONE FUROATE [Suspect]
     Active Substance: FLUTICASONE FUROATE
     Dosage: 2 DOSAGE FORM, QD
  76. FLUTICASONE FUROATE [Suspect]
     Active Substance: FLUTICASONE FUROATE
     Dosage: 2 DOSAGE FORM, QD
     Route: 064
  77. FLUTICASONE FUROATE [Suspect]
     Active Substance: FLUTICASONE FUROATE
     Dosage: 2 DOSAGE FORM, QD
  78. FLUTICASONE FUROATE [Suspect]
     Active Substance: FLUTICASONE FUROATE
     Dosage: 2 DOSAGE FORM, QD
  79. FLUTICASONE FUROATE [Suspect]
     Active Substance: FLUTICASONE FUROATE
     Dosage: 2 DOSAGE FORM, QD
     Route: 064
  80. FLUTICASONE FUROATE [Suspect]
     Active Substance: FLUTICASONE FUROATE
     Dosage: 2 DOSAGE FORM, QD
     Route: 064
  81. FLUTICASONE FUROATE [Suspect]
     Active Substance: FLUTICASONE FUROATE
     Dosage: 1 DOSAGE FORM, QD
     Route: 064
  82. FLUTICASONE FUROATE [Suspect]
     Active Substance: FLUTICASONE FUROATE
     Dosage: 1 DOSAGE FORM, QD
  83. FLUTICASONE FUROATE [Suspect]
     Active Substance: FLUTICASONE FUROATE
     Dosage: 1 DOSAGE FORM, QD
  84. FLUTICASONE FUROATE [Suspect]
     Active Substance: FLUTICASONE FUROATE
     Dosage: 1 DOSAGE FORM, QD
     Route: 064
  85. FLUTICASONE FUROATE [Suspect]
     Active Substance: FLUTICASONE FUROATE
     Dosage: 1 DOSAGE FORM, QD
     Route: 064
  86. FLUTICASONE FUROATE [Suspect]
     Active Substance: FLUTICASONE FUROATE
     Dosage: 1 DOSAGE FORM, QD
     Route: 064
  87. FLUTICASONE FUROATE [Suspect]
     Active Substance: FLUTICASONE FUROATE
     Dosage: 1 DOSAGE FORM, QD
  88. FLUTICASONE FUROATE [Suspect]
     Active Substance: FLUTICASONE FUROATE
     Dosage: 1 DOSAGE FORM, QD
  89. FLUTICASONE FUROATE [Suspect]
     Active Substance: FLUTICASONE FUROATE
     Dosage: UNK UNK, BID
  90. FLUTICASONE FUROATE [Suspect]
     Active Substance: FLUTICASONE FUROATE
     Dosage: UNK UNK, BID
  91. FLUTICASONE FUROATE [Suspect]
     Active Substance: FLUTICASONE FUROATE
     Dosage: UNK UNK, BID
     Route: 064
  92. FLUTICASONE FUROATE [Suspect]
     Active Substance: FLUTICASONE FUROATE
     Dosage: UNK UNK, BID
     Route: 064
  93. FLUTICASONE FUROATE [Suspect]
     Active Substance: FLUTICASONE FUROATE
     Dosage: UNK UNK, BID
  94. FLUTICASONE FUROATE [Suspect]
     Active Substance: FLUTICASONE FUROATE
     Dosage: UNK UNK, BID
  95. FLUTICASONE FUROATE [Suspect]
     Active Substance: FLUTICASONE FUROATE
     Dosage: UNK UNK, BID
     Route: 064
  96. FLUTICASONE FUROATE [Suspect]
     Active Substance: FLUTICASONE FUROATE
     Dosage: UNK UNK, BID
     Route: 064
  97. FLUTICASONE FUROATE [Suspect]
     Active Substance: FLUTICASONE FUROATE
     Indication: Product used for unknown indication
     Dosage: 250 MICROGRAM, QD
  98. FLUTICASONE FUROATE [Suspect]
     Active Substance: FLUTICASONE FUROATE
     Dosage: 250 MICROGRAM, QD
  99. FLUTICASONE FUROATE [Suspect]
     Active Substance: FLUTICASONE FUROATE
     Dosage: 250 MICROGRAM, QD
     Route: 064
  100. FLUTICASONE FUROATE [Suspect]
     Active Substance: FLUTICASONE FUROATE
     Dosage: 250 MICROGRAM, QD
     Route: 064
  101. FLUTICASONE FUROATE [Suspect]
     Active Substance: FLUTICASONE FUROATE
     Dosage: 250 MICROGRAM, QD
  102. FLUTICASONE FUROATE [Suspect]
     Active Substance: FLUTICASONE FUROATE
     Dosage: 250 MICROGRAM, QD
  103. FLUTICASONE FUROATE [Suspect]
     Active Substance: FLUTICASONE FUROATE
     Dosage: 250 MICROGRAM, QD
     Route: 064
  104. FLUTICASONE FUROATE [Suspect]
     Active Substance: FLUTICASONE FUROATE
     Dosage: 250 MICROGRAM, QD
     Route: 064
  105. SERETIDE [Suspect]
     Active Substance: FLUTICASONE PROPIONATE\SALMETEROL XINAFOATE
     Indication: Product used for unknown indication
  106. SERETIDE [Suspect]
     Active Substance: FLUTICASONE PROPIONATE\SALMETEROL XINAFOATE
  107. SERETIDE [Suspect]
     Active Substance: FLUTICASONE PROPIONATE\SALMETEROL XINAFOATE
     Route: 064
  108. SERETIDE [Suspect]
     Active Substance: FLUTICASONE PROPIONATE\SALMETEROL XINAFOATE
     Route: 064
  109. SERETIDE [Suspect]
     Active Substance: FLUTICASONE PROPIONATE\SALMETEROL XINAFOATE
  110. SERETIDE [Suspect]
     Active Substance: FLUTICASONE PROPIONATE\SALMETEROL XINAFOATE
  111. SERETIDE [Suspect]
     Active Substance: FLUTICASONE PROPIONATE\SALMETEROL XINAFOATE
     Route: 064
  112. SERETIDE [Suspect]
     Active Substance: FLUTICASONE PROPIONATE\SALMETEROL XINAFOATE
     Route: 064
  113. THEOPHYLLINE [Suspect]
     Active Substance: THEOPHYLLINE
     Indication: Product used for unknown indication
     Dosage: 200 MILLIGRAM, QD
  114. THEOPHYLLINE [Suspect]
     Active Substance: THEOPHYLLINE
     Dosage: 200 MILLIGRAM, QD
  115. THEOPHYLLINE [Suspect]
     Active Substance: THEOPHYLLINE
     Dosage: 200 MILLIGRAM, QD
     Route: 064
  116. THEOPHYLLINE [Suspect]
     Active Substance: THEOPHYLLINE
     Dosage: 200 MILLIGRAM, QD
     Route: 064
  117. THEOPHYLLINE [Suspect]
     Active Substance: THEOPHYLLINE
     Dosage: 200 MILLIGRAM, QD
  118. THEOPHYLLINE [Suspect]
     Active Substance: THEOPHYLLINE
     Dosage: 200 MILLIGRAM, QD
  119. THEOPHYLLINE [Suspect]
     Active Substance: THEOPHYLLINE
     Dosage: 200 MILLIGRAM, QD
     Route: 064
  120. THEOPHYLLINE [Suspect]
     Active Substance: THEOPHYLLINE
     Dosage: 200 MILLIGRAM, QD
     Route: 064
  121. VILANTEROL TRIFENATATE [Suspect]
     Active Substance: VILANTEROL TRIFENATATE
     Indication: Product used for unknown indication
     Dosage: 1 DF, QD
  122. VILANTEROL TRIFENATATE [Suspect]
     Active Substance: VILANTEROL TRIFENATATE
     Dosage: 1 DF, QD
  123. VILANTEROL TRIFENATATE [Suspect]
     Active Substance: VILANTEROL TRIFENATATE
     Dosage: 1 DF, QD
     Route: 064
  124. VILANTEROL TRIFENATATE [Suspect]
     Active Substance: VILANTEROL TRIFENATATE
     Dosage: 1 DF, QD
     Route: 064
  125. VILANTEROL TRIFENATATE [Suspect]
     Active Substance: VILANTEROL TRIFENATATE
     Dosage: 1 DF, QD
  126. VILANTEROL TRIFENATATE [Suspect]
     Active Substance: VILANTEROL TRIFENATATE
     Dosage: 1 DF, QD
  127. VILANTEROL TRIFENATATE [Suspect]
     Active Substance: VILANTEROL TRIFENATATE
     Dosage: 1 DF, QD
     Route: 064
  128. VILANTEROL TRIFENATATE [Suspect]
     Active Substance: VILANTEROL TRIFENATATE
     Dosage: 1 DF, QD
     Route: 064
  129. LEVOCETIRIZINE DIHYDROCHLORIDE [Suspect]
     Active Substance: LEVOCETIRIZINE DIHYDROCHLORIDE
     Indication: Product used for unknown indication
     Dosage: 5 MG, QD
     Dates: start: 20170808
  130. LEVOCETIRIZINE DIHYDROCHLORIDE [Suspect]
     Active Substance: LEVOCETIRIZINE DIHYDROCHLORIDE
     Dosage: 5 MG, QD
     Dates: start: 20170808
  131. LEVOCETIRIZINE DIHYDROCHLORIDE [Suspect]
     Active Substance: LEVOCETIRIZINE DIHYDROCHLORIDE
     Dosage: 5 MG, QD
     Route: 064
     Dates: start: 20170808
  132. LEVOCETIRIZINE DIHYDROCHLORIDE [Suspect]
     Active Substance: LEVOCETIRIZINE DIHYDROCHLORIDE
     Dosage: 5 MG, QD
     Route: 064
     Dates: start: 20170808
  133. LEVOCETIRIZINE DIHYDROCHLORIDE [Suspect]
     Active Substance: LEVOCETIRIZINE DIHYDROCHLORIDE
     Dosage: 5 MG, QD
     Dates: start: 20170808
  134. LEVOCETIRIZINE DIHYDROCHLORIDE [Suspect]
     Active Substance: LEVOCETIRIZINE DIHYDROCHLORIDE
     Dosage: 5 MG, QD
     Dates: start: 20170808
  135. LEVOCETIRIZINE DIHYDROCHLORIDE [Suspect]
     Active Substance: LEVOCETIRIZINE DIHYDROCHLORIDE
     Dosage: 5 MG, QD
     Route: 064
     Dates: start: 20170808
  136. LEVOCETIRIZINE DIHYDROCHLORIDE [Suspect]
     Active Substance: LEVOCETIRIZINE DIHYDROCHLORIDE
     Dosage: 5 MG, QD
     Route: 064
     Dates: start: 20170808

REACTIONS (4)
  - Foetal malformation [Fatal]
  - Trisomy 18 [Fatal]
  - Foetal exposure during pregnancy [Fatal]
  - Low birth weight baby [Unknown]

NARRATIVE: CASE EVENT DATE: 20170808
